FAERS Safety Report 14347802 (Version 1)
Quarter: 2018Q1

REPORT INFORMATION
  Report Type: Spontaneous
  Country: US (occurrence: US)
  Receive Date: 20180103
  Receipt Date: 20180103
  Transmission Date: 20180509
  Serious: Yes (Other)
  Sender: FDA-Public Use
  Company Number: US-BAYER-2017-249744

PATIENT
  Sex: Female
  Weight: 57 kg

DRUGS (3)
  1. RAMIPRIL. [Concomitant]
     Active Substance: RAMIPRIL
  2. BAYER LOW DOSE [Suspect]
     Active Substance: ASPIRIN
     Route: 048
  3. BAYER ASPIRIN [Suspect]
     Active Substance: ASPIRIN

REACTIONS (5)
  - Dyspepsia [Unknown]
  - Gastric ulcer [Unknown]
  - Drug prescribing error [Unknown]
  - Abdominal discomfort [Unknown]
  - Circumstance or information capable of leading to medication error [Unknown]
